FAERS Safety Report 12352974 (Version 2)
Quarter: 2016Q2

REPORT INFORMATION
  Report Type: Report from Study
  Country: US (occurrence: US)
  Receive Date: 20160510
  Receipt Date: 20160517
  Transmission Date: 20160815
  Serious: Yes (Life-Threatening, Hospitalization)
  Sender: FDA-Public Use
  Company Number: US-EISAI MEDICAL RESEARCH-EC-2015-006879

PATIENT
  Age: 78 Year
  Sex: Male
  Weight: 72.6 kg

DRUGS (21)
  1. FLAXSEED [Concomitant]
     Active Substance: FLAX SEED
  2. MULTIVITAMIN [Concomitant]
     Active Substance: VITAMINS
  3. ALTACE [Concomitant]
     Active Substance: RAMIPRIL
     Dates: start: 2015
  4. LENVIMA [Suspect]
     Active Substance: LENVATINIB
     Route: 048
     Dates: start: 201506, end: 201507
  5. CALCIUM [Concomitant]
     Active Substance: CALCIUM
  6. CRESTOR [Concomitant]
     Active Substance: ROSUVASTATIN CALCIUM
  7. ARTIFICIAL TEARS [Concomitant]
     Active Substance: GLYCERIN\HYPROMELLOSES\POLYETHYLENE GLYCOL 400
  8. VESICARE [Concomitant]
     Active Substance: SOLIFENACIN SUCCINATE
  9. MIRALAX [Concomitant]
     Active Substance: POLYETHYLENE GLYCOL 3350
  10. LENVIMA [Suspect]
     Active Substance: LENVATINIB
     Route: 048
     Dates: start: 201507, end: 201508
  11. RAMIPRIL. [Concomitant]
     Active Substance: RAMIPRIL
  12. ASPIRIN. [Concomitant]
     Active Substance: ASPIRIN
  13. TOPROL XL [Concomitant]
     Active Substance: METOPROLOL SUCCINATE
  14. LENVIMA [Suspect]
     Active Substance: LENVATINIB
     Route: 048
     Dates: start: 201508, end: 201605
  15. VITAMIN D3 [Concomitant]
     Active Substance: CHOLECALCIFEROL
  16. PROLIA [Concomitant]
     Active Substance: DENOSUMAB
  17. ALTACE [Concomitant]
     Active Substance: RAMIPRIL
     Dates: end: 2015
  18. MEGACE [Concomitant]
     Active Substance: MEGESTROL ACETATE
  19. LENVIMA [Suspect]
     Active Substance: LENVATINIB
     Indication: PAPILLARY THYROID CANCER
     Route: 048
     Dates: start: 20150515, end: 201506
  20. NORVASC [Concomitant]
     Active Substance: AMLODIPINE BESYLATE
  21. SYNTHROID [Concomitant]
     Active Substance: LEVOTHYROXINE SODIUM

REACTIONS (42)
  - Asthenia [Not Recovered/Not Resolved]
  - Drug administration error [Unknown]
  - Myositis [Recovering/Resolving]
  - Urine analysis abnormal [Unknown]
  - Inflammation [Unknown]
  - Amnesia [Unknown]
  - Balance disorder [Unknown]
  - Muscle tone disorder [Unknown]
  - Fatigue [Unknown]
  - Abdominal pain upper [Not Recovered/Not Resolved]
  - Skin hypertrophy [Unknown]
  - Musculoskeletal pain [Unknown]
  - Proteinuria [Unknown]
  - Blood creatinine increased [Unknown]
  - Disorientation [Unknown]
  - Skin ulcer [Unknown]
  - Skin discolouration [Unknown]
  - Dysphonia [Unknown]
  - Constipation [Recovered/Resolved]
  - Fall [Unknown]
  - Pain in extremity [Unknown]
  - Musculoskeletal stiffness [Unknown]
  - Pollakiuria [Unknown]
  - Myalgia [Not Recovered/Not Resolved]
  - Feeling cold [Unknown]
  - Product blister packaging issue [Unknown]
  - Weight decreased [Not Recovered/Not Resolved]
  - Neuropathy peripheral [Unknown]
  - Muscular weakness [Unknown]
  - Oral pain [Unknown]
  - Decreased appetite [Unknown]
  - Dry mouth [Unknown]
  - Neck pain [Unknown]
  - Eyelid disorder [Unknown]
  - Musculoskeletal pain [Unknown]
  - Diarrhoea [Unknown]
  - Blood pressure increased [Not Recovered/Not Resolved]
  - Oedema peripheral [Unknown]
  - Abdominal distension [Unknown]
  - Chest pain [Recovered/Resolved]
  - Feeling abnormal [Unknown]
  - Dizziness [Unknown]

NARRATIVE: CASE EVENT DATE: 2015
